FAERS Safety Report 23300814 (Version 2)
Quarter: 2023Q4

REPORT INFORMATION
  Report Type: Report from Study
  Country: US (occurrence: US)
  Receive Date: 20231215
  Receipt Date: 20231229
  Transmission Date: 20240110
  Serious: Yes (Death, Hospitalization, Other)
  Sender: FDA-Public Use
  Company Number: US-002147023-NVSC2023US266007

PATIENT
  Age: 85 Year
  Sex: Male

DRUGS (1)
  1. ENTRESTO [Suspect]
     Active Substance: SACUBITRIL\VALSARTAN
     Indication: Cardiac failure congestive
     Dosage: UNK (97/103)
     Route: 048
     Dates: start: 20200504

REACTIONS (6)
  - Death [Fatal]
  - Metabolic encephalopathy [Unknown]
  - Pneumonia aspiration [Unknown]
  - Sepsis [Unknown]
  - Multiple organ dysfunction syndrome [Unknown]
  - Urinary tract infection [Unknown]

NARRATIVE: CASE EVENT DATE: 20231129
